FAERS Safety Report 4744154-6 (Version None)
Quarter: 2005Q3

REPORT INFORMATION
  Report Type: 
  Country: None (occurrence: None)
  Receive Date: 20050810
  Receipt Date: 20050810
  Transmission Date: 20060218
  Serious: Yes (Hospitalization)
  Sender: FDA-Public Use
  Company Number: None

PATIENT
  Sex: Female
  Weight: 93.5317 kg

DRUGS (4)
  1. TESTOSTERONE [Suspect]
     Indication: HIP FRACTURE
     Dosage: 1200 MCG-DAILY TOPICAL
     Route: 061
     Dates: start: 20050426, end: 20050712
  2. GLUCOPHAGE [Concomitant]
  3. AMARYL [Concomitant]
  4. CAELEXA [Concomitant]

REACTIONS (6)
  - ASTHENIA [None]
  - BALANCE DISORDER [None]
  - COORDINATION ABNORMAL [None]
  - DEPRESSED LEVEL OF CONSCIOUSNESS [None]
  - FALL [None]
  - HEAD INJURY [None]
